FAERS Safety Report 13607672 (Version 2)
Quarter: 2017Q2

REPORT INFORMATION
  Report Type: Report from Study
  Country: US (occurrence: US)
  Receive Date: 20170602
  Receipt Date: 20170607
  Transmission Date: 20170830
  Serious: Yes (Other)
  Sender: FDA-Public Use
  Company Number: US-BRISTOL-MYERS SQUIBB COMPANY-BMS-2017-047512

PATIENT
  Age: 55 Year
  Sex: Male
  Weight: 122 kg

DRUGS (5)
  1. CARBOPLATIN. [Suspect]
     Active Substance: CARBOPLATIN
     Indication: HODGKIN^S DISEASE
     Dosage: UNK
     Route: 065
     Dates: start: 20161107
  2. ETOPOSIDE. [Suspect]
     Active Substance: ETOPOSIDE
     Indication: HODGKIN^S DISEASE
     Dosage: UNK
     Route: 065
     Dates: start: 20161107
  3. IFOSFAMIDE. [Suspect]
     Active Substance: IFOSFAMIDE
     Indication: HODGKIN^S DISEASE
     Dosage: UNK
     Route: 065
     Dates: start: 20161107
  4. NIVOLUMAB [Suspect]
     Active Substance: NIVOLUMAB
     Indication: HODGKIN^S DISEASE
     Route: 065
  5. BRENTUXIMAB VEDOTIN [Suspect]
     Active Substance: BRENTUXIMAB VEDOTIN
     Indication: HODGKIN^S DISEASE
     Dosage: UNK
     Route: 065
     Dates: start: 20170206

REACTIONS (12)
  - Neuropathy peripheral [Recovering/Resolving]
  - Pruritus [Recovered/Resolved]
  - Hypertension [Recovering/Resolving]
  - Pharyngitis [Recovered/Resolved]
  - Hypokalaemia [Recovering/Resolving]
  - Hyponatraemia [Recovered/Resolved]
  - Feeling jittery [Recovered/Resolved]
  - Platelet count decreased [Recovering/Resolving]
  - Headache [Recovered/Resolved]
  - Anaemia [Recovered/Resolved]
  - Upper-airway cough syndrome [Recovered/Resolved]
  - Sinusitis [Recovered/Resolved]

NARRATIVE: CASE EVENT DATE: 20161121
